FAERS Safety Report 23659322 (Version 1)
Quarter: 2024Q1

REPORT INFORMATION
  Report Type: Spontaneous
  Country: US (occurrence: US)
  Receive Date: 20240321
  Receipt Date: 20240321
  Transmission Date: 20240409
  Serious: No
  Sender: FDA-Public Use
  Company Number: US-BIOGEN-2022BI01156849

PATIENT
  Sex: Female

DRUGS (1)
  1. TYSABRI [Suspect]
     Active Substance: NATALIZUMAB
     Indication: Multiple sclerosis
     Route: 050
     Dates: start: 20220324

REACTIONS (9)
  - Inappropriate schedule of product administration [Unknown]
  - COVID-19 [Unknown]
  - Tympanic membrane perforation [Unknown]
  - Poor venous access [Unknown]
  - Asthenia [Unknown]
  - Tremor [Unknown]
  - Pain in extremity [Unknown]
  - Headache [Recovered/Resolved]
  - Fatigue [Recovered/Resolved]

NARRATIVE: CASE EVENT DATE: 20220101
